FAERS Safety Report 18839194 (Version 3)
Quarter: 2021Q2

REPORT INFORMATION
  Report Type: Spontaneous
  Country: US (occurrence: US)
  Receive Date: 20210203
  Receipt Date: 20210603
  Transmission Date: 20210717
  Serious: No
  Sender: FDA-Public Use
  Company Number: US-PFIZER INC-2021094079

PATIENT
  Age: 48 Year
  Sex: Female

DRUGS (2)
  1. LYRICA [Suspect]
     Active Substance: PREGABALIN
     Dosage: 100 MG, 2X/DAY (1 CAP TWICE A DAY)
  2. LYRICA [Suspect]
     Active Substance: PREGABALIN
     Dosage: 200 MG, 2X/DAY (2 CAPS TWICE A DAY)

REACTIONS (1)
  - Feeling abnormal [Unknown]
